FAERS Safety Report 5793407-1 (Version None)
Quarter: 2008Q2

REPORT INFORMATION
  Report Type: 
  Country: None (occurrence: None)
  Receive Date: 20080627
  Receipt Date: 20080620
  Transmission Date: 20081010
  Serious: Yes (Other)
  Sender: FDA-Public Use
  Company Number: GR-ASTRAZENECA-2008AC01583

PATIENT
  Age: 37 Year
  Sex: Female

DRUGS (2)
  1. BUDESONIDE NASAL SPRAY [Suspect]
     Indication: RHINITIS
     Route: 045
  2. FORMOTEROL/BUDESONIDE [Suspect]
     Route: 055

REACTIONS (9)
  - ANGIOEDEMA [None]
  - DYSPHAGIA [None]
  - FACE OEDEMA [None]
  - HYPERSENSITIVITY [None]
  - NASAL DISCOMFORT [None]
  - ORAL PRURITUS [None]
  - PHARYNGEAL ERYTHEMA [None]
  - THROAT IRRITATION [None]
  - TONGUE OEDEMA [None]
